FAERS Safety Report 23867302 (Version 1)
Quarter: 2024Q2

REPORT INFORMATION
  Report Type: Spontaneous
  Country: US (occurrence: US)
  Receive Date: 20240517
  Receipt Date: 20240517
  Transmission Date: 20240716
  Serious: Yes (Other)
  Sender: FDA-Public Use
  Company Number: US-MYLANLABS-2024M1043400

PATIENT
  Sex: Female

DRUGS (8)
  1. PREDNISONE [Suspect]
     Active Substance: PREDNISONE
     Indication: Dermatitis contact
     Dosage: TAPER PACK
     Route: 065
     Dates: start: 2022
  2. DIPHENHYDRAMINE [Suspect]
     Active Substance: DIPHENHYDRAMINE
     Indication: Trichophytosis
     Dosage: UNK
     Route: 065
  3. KETOCONAZOLE [Suspect]
     Active Substance: KETOCONAZOLE
     Indication: Trichophytosis
     Dosage: UNK
     Route: 061
     Dates: start: 2022
  4. TERBINAFINE [Suspect]
     Active Substance: TERBINAFINE
     Indication: Trichophytosis
     Dosage: 250 MILLIGRAM, QD
     Route: 048
  5. FLUCONAZOLE [Suspect]
     Active Substance: FLUCONAZOLE
     Indication: Trichophytosis
     Dosage: 150 MILLIGRAM, QW
     Route: 065
  6. FLUCONAZOLE [Suspect]
     Active Substance: FLUCONAZOLE
     Dosage: 200 MILLIGRAM, QD
     Route: 065
  7. MOMETASONE [Suspect]
     Active Substance: MOMETASONE
     Indication: Dermatitis contact
     Dosage: UNK
     Route: 061
  8. ECONAZOLE [Suspect]
     Active Substance: ECONAZOLE
     Indication: Trichophytosis
     Dosage: UNK
     Route: 061

REACTIONS (3)
  - Condition aggravated [Recovered/Resolved]
  - Dermatitis contact [Recovered/Resolved]
  - Drug ineffective [Unknown]
